FAERS Safety Report 17355931 (Version 2)
Quarter: 2020Q2

REPORT INFORMATION
  Report Type: Spontaneous
  Country: US (occurrence: US)
  Receive Date: 20200131
  Receipt Date: 20200409
  Transmission Date: 20200713
  Serious: No
  Sender: FDA-Public Use
  Company Number: US-BIOGEN-2020BI00831891

PATIENT
  Sex: Female
  Weight: 49.03 kg

DRUGS (1)
  1. TYSABRI [Suspect]
     Active Substance: NATALIZUMAB
     Indication: MULTIPLE SCLEROSIS
     Route: 065
     Dates: start: 20170712

REACTIONS (4)
  - Dry skin [Recovered/Resolved]
  - Blood disorder [Unknown]
  - Pruritus [Recovered/Resolved]
  - Swelling [Recovered/Resolved]
